FAERS Safety Report 8931511 (Version 1)
Quarter: 2012Q4

REPORT INFORMATION
  Report Type: 
  Country: US (occurrence: US)
  Receive Date: 20121128
  Receipt Date: 20121128
  Transmission Date: 20130627
  Serious: Yes (Hospitalization, Disabling)
  Sender: FDA-Public Use
  Company Number: US-ASTRAZENECA-2012SE87751

PATIENT
  Age: 57 Year
  Sex: Female
  Weight: 78 kg

DRUGS (1)
  1. NEXIUM [Suspect]
     Indication: GASTROOESOPHAGEAL REFLUX DISEASE
     Route: 048
     Dates: start: 2001

REACTIONS (5)
  - Cerebrovascular accident [Recovering/Resolving]
  - Convulsion [Recovering/Resolving]
  - Pulmonary embolism [Recovering/Resolving]
  - Respiratory distress [Recovering/Resolving]
  - Hemiparesis [Unknown]
